FAERS Safety Report 4730189-6 (Version None)
Quarter: 2005Q3

REPORT INFORMATION
  Report Type: 
  Country: None (occurrence: None)
  Receive Date: 20050801
  Receipt Date: 20050707
  Transmission Date: 20060218
  Serious: Yes (Life-Threatening)
  Sender: FDA-Public Use
  Company Number: 2005JP001378

PATIENT
  Age: 72 Year
  Sex: Male
  Weight: 40 kg

DRUGS (2)
  1. CEFAZOLIN [Suspect]
     Dosage: 1G TWICE PER DAY
     Route: 042
     Dates: start: 20050613, end: 20050616
  2. FAMOTIDINE [Concomitant]
     Dates: start: 20050609, end: 20050612

REACTIONS (3)
  - INFECTION [None]
  - JAUNDICE [None]
  - PLATELET COUNT DECREASED [None]
